FAERS Safety Report 5364283-6 (Version None)
Quarter: 2007Q2

REPORT INFORMATION
  Report Type: 
  Country: None (occurrence: None)
  Receive Date: 20070620
  Receipt Date: 20070612
  Transmission Date: 20071010
  Serious: Yes (Hospitalization)
  Sender: FDA-Public Use
  Company Number: FR-ABBOTT-00P-056-0087387-00

PATIENT
  Sex: Female

DRUGS (5)
  1. DEPAKENE [Suspect]
     Indication: EPILEPSY
     Route: 048
     Dates: start: 19991211, end: 20000127
  2. AMIODARONE HCL [Suspect]
     Indication: ARRHYTHMIA
  3. DILTIAZEM HYDROCHLORIDE [Concomitant]
     Route: 048
     Dates: start: 19991224
  4. CLOPIDOGREL [Concomitant]
     Route: 048
     Dates: start: 19991227
  5. ACETYLSALICYLIC ACID SRT [Concomitant]
     Route: 048
     Dates: start: 19991220, end: 19991227

REACTIONS (5)
  - ATRIAL FIBRILLATION [None]
  - LYMPHADENOPATHY [None]
  - PERICARDITIS [None]
  - PLEURISY [None]
  - UNEVALUABLE EVENT [None]
